FAERS Safety Report 24177264 (Version 2)
Quarter: 2024Q3

REPORT INFORMATION
  Report Type: Spontaneous
  Country: JP (occurrence: JP)
  Receive Date: 20240806
  Receipt Date: 20240827
  Transmission Date: 20241017
  Serious: Yes (Other)
  Sender: GLAXOSMITHKLINE
  Company Number: JP-GSKNCCC-Case-02035411_AE-86124

PATIENT

DRUGS (5)
  1. ANORO ELLIPTA [Suspect]
     Active Substance: UMECLIDINIUM BROMIDE\VILANTEROL TRIFENATATE
     Indication: Emphysema
     Dosage: UNK, 1D
  2. ANORO ELLIPTA [Suspect]
     Active Substance: UMECLIDINIUM BROMIDE\VILANTEROL TRIFENATATE
     Dosage: UNK, BID IN MORNING AND EVENING
     Dates: start: 202407
  3. SERETIDE [Suspect]
     Active Substance: FLUTICASONE PROPIONATE\SALMETEROL XINAFOATE
     Indication: Emphysema
     Dosage: UNK, BID
     Dates: start: 2024
  4. CARBOCYSTEINE [Concomitant]
     Active Substance: CARBOCYSTEINE
     Indication: Emphysema
     Dosage: 500 MG, BID
     Dates: start: 20240603
  5. AMBROXOL [Concomitant]
     Active Substance: AMBROXOL
     Indication: Emphysema
     Dosage: 15 MG, TID
     Dates: start: 20240603

REACTIONS (7)
  - Interstitial lung disease [Unknown]
  - Emphysema [Unknown]
  - Condition aggravated [Unknown]
  - Suffocation feeling [Unknown]
  - Sleep disorder due to a general medical condition [Unknown]
  - Inappropriate schedule of product administration [Unknown]
  - Intentional overdose [Unknown]
